FAERS Safety Report 9261514 (Version 3)
Quarter: 2013Q2

REPORT INFORMATION
  Report Type: Spontaneous
  Country: BR (occurrence: BR)
  Receive Date: 20130429
  Receipt Date: 20130613
  Transmission Date: 20140414
  Serious: Yes (Hospitalization, Other)
  Sender: FDA-Public Use
  Company Number: BR-PFIZER INC-2013128392

PATIENT
  Age: 64 Year
  Sex: Male

DRUGS (2)
  1. SUTENT [Suspect]
     Indication: METASTATIC RENAL CELL CARCINOMA
     Dosage: 50 MG, CYCLIC (CYCLE 4 PER 2)
     Route: 048
     Dates: start: 20120710, end: 201303
  2. METFORMIN [Concomitant]
     Indication: DIABETES MELLITUS
     Dosage: UNSPECIFIED DOSE, TWICE A DAY

REACTIONS (6)
  - Convulsion [Unknown]
  - Brain oedema [Recovered/Resolved with Sequelae]
  - Pulmonary oedema [Not Recovered/Not Resolved]
  - Malaise [Unknown]
  - Diarrhoea [Unknown]
  - Thrombosis [Unknown]
